FAERS Safety Report 10877459 (Version 2)
Quarter: 2015Q1

REPORT INFORMATION
  Report Type: Spontaneous
  Country: IT (occurrence: None)
  Receive Date: 20150224
  Receipt Date: 20150327
  Transmission Date: 20150721
  Serious: Yes (Hospitalization)
  Sender: FDA-Public Use
  Company Number: 2749804

PATIENT
  Age: 76 Year
  Sex: Female
  Weight: 68 kg

DRUGS (1)
  1. OXALIPLATIN. [Suspect]
     Active Substance: OXALIPLATIN
     Indication: COLON CANCER
     Dosage: 125 MG MILLIGRAM(S), TOTAL, INTRAVENOUS (NOT OTHERWISE SPECIFIED)
     Route: 042

REACTIONS (3)
  - Infusion related reaction [None]
  - Laryngospasm [None]
  - Dyspnoea [None]

NARRATIVE: CASE EVENT DATE: 20150129
